FAERS Safety Report 4384251-0 (Version None)
Quarter: 2004Q2

REPORT INFORMATION
  Report Type: 
  Country: None (occurrence: None)
  Receive Date: 20040624
  Receipt Date: 20040525
  Transmission Date: 20050107
  Serious: Yes (Life-Threatening, Hospitalization)
  Sender: FDA-Public Use
  Company Number: JP-MERCK-0405USA02067

PATIENT
  Age: 55 Year
  Sex: Female

DRUGS (7)
  1. PEPCID RPD [Suspect]
     Indication: PROPHYLAXIS
     Route: 048
     Dates: start: 20020601, end: 20040513
  2. LASIX [Concomitant]
     Route: 048
     Dates: start: 20030716
  3. LENTINAN [Concomitant]
     Route: 042
     Dates: start: 20031101, end: 20040329
  4. PREDONINE [Concomitant]
     Route: 048
     Dates: start: 20020601
  5. RHYTHMY [Concomitant]
     Route: 048
     Dates: start: 20030409
  6. PURSENNID [Concomitant]
     Route: 048
     Dates: start: 20031101
  7. TEGAFUR [Suspect]
     Indication: GASTRIC CANCER
     Route: 048
     Dates: start: 20020615, end: 20040503

REACTIONS (6)
  - BACK PAIN [None]
  - MALIGNANT PLEURAL EFFUSION [None]
  - POLYMYOSITIS [None]
  - RHABDOMYOLYSIS [None]
  - SCIATICA [None]
  - SLEEP DISORDER DUE TO GENERAL MEDICAL CONDITION, INSOMNIA TYPE [None]
